FAERS Safety Report 4554526-0 (Version None)
Quarter: 2005Q1

REPORT INFORMATION
  Report Type: 
  Country: None (occurrence: None)
  Receive Date: 20041227
  Receipt Date: 20041109
  Transmission Date: 20050727
  Serious: No
  Sender: FDA-Public Use
  Company Number: SP00372

PATIENT
  Age: 39 Year
  Sex: Male
  Weight: 65.318 kg

DRUGS (1)
  1. XIFAXAN [Suspect]
     Indication: IRRITABLE BOWEL SYNDROME
     Dosage: 200 MG/TID, ORAL
     Route: 048
     Dates: start: 20041020, end: 20041025

REACTIONS (4)
  - ABDOMINAL PAIN [None]
  - ABNORMAL FAECES [None]
  - DIARRHOEA [None]
  - FLATULENCE [None]
